FAERS Safety Report 9068614 (Version 1)
Quarter: 2013Q1

REPORT INFORMATION
  Report Type: Spontaneous
  Country: SE (occurrence: SE)
  Receive Date: 20130128
  Receipt Date: 20130128
  Transmission Date: 20140127
  Serious: Yes (Other)
  Sender: FDA-Public Use
  Company Number: SE-JNJFOC-20130107831

PATIENT
  Sex: Male

DRUGS (3)
  1. HALDOL [Suspect]
     Indication: SCHIZOPHRENIA
     Route: 030
     Dates: end: 201201
  2. AKINETON [Concomitant]
     Route: 065
  3. CLOZAPINE [Concomitant]
     Route: 065

REACTIONS (2)
  - Skin mass [Unknown]
  - Pain [Unknown]
